FAERS Safety Report 9928004 (Version 1)
Quarter: 2014Q1

REPORT INFORMATION
  Report Type: Spontaneous
  Country: US (occurrence: US)
  Receive Date: 20140227
  Receipt Date: 20140227
  Transmission Date: 20141002
  Serious: No
  Sender: FDA-Public Use
  Company Number: US-PFIZER INC-2014056314

PATIENT
  Age: 61 Year
  Sex: Female
  Weight: 59 kg

DRUGS (2)
  1. LYRICA [Suspect]
     Indication: DIABETIC NEUROPATHY
     Dosage: 100 MG, 3X/DAY
     Dates: start: 201402
  2. HYDROXYZINE [Concomitant]
     Indication: PANIC ATTACK
     Dosage: 25 MG, AS NEEDED

REACTIONS (3)
  - Increased appetite [Unknown]
  - Weight increased [Unknown]
  - Drug effect incomplete [Unknown]
